FAERS Safety Report 21960960 (Version 1)
Quarter: 2023Q1

REPORT INFORMATION
  Report Type: Spontaneous
  Country: US (occurrence: US)
  Receive Date: 20230207
  Receipt Date: 20230207
  Transmission Date: 20230418
  Serious: No
  Sender: FDA-Public Use
  Company Number: US-Vifor (International) Inc.-VIT-2023-00448

PATIENT
  Sex: Male

DRUGS (1)
  1. VELTASSA [Suspect]
     Active Substance: PATIROMER
     Indication: Hyperkalaemia
     Dosage: ONCE DAY AT NIGHT 3 OR 4-5 HOURS AFTER MEAL
     Dates: end: 202301

REACTIONS (4)
  - Dyspnoea [Unknown]
  - Retching [Unknown]
  - Diarrhoea [Unknown]
  - Product colour issue [Unknown]
